FAERS Safety Report 8110974-3 (Version None)
Quarter: 2012Q1

REPORT INFORMATION
  Report Type: 
  Country: None (occurrence: None)
  Receive Date: 20120203
  Receipt Date: 20110119
  Transmission Date: 20120608
  Serious: Yes (Other)
  Sender: FDA-Public Use
  Company Number: US-GLAXOSMITHKLINE-A0907381A

PATIENT
  Age: 52 Year
  Sex: Female

DRUGS (9)
  1. LAMICTAL [Suspect]
     Indication: CONVULSION
     Dosage: 25MG PER DAY
     Route: 048
     Dates: start: 20110111
  2. KEPPRA [Concomitant]
  3. FLUDROCORTISONE ACETATE [Concomitant]
  4. VITAMIN D [Concomitant]
  5. MIDODRINE HYDROCHLORIDE [Concomitant]
  6. CITRACAL [Concomitant]
  7. VITAMIN B6 [Concomitant]
  8. PHENOBARBITAL TAB [Concomitant]
  9. VITAMIN B-12 [Concomitant]

REACTIONS (2)
  - CONVULSION [None]
  - DRUG INEFFECTIVE [None]
